FAERS Safety Report 7558348-8 (Version None)
Quarter: 2011Q2

REPORT INFORMATION
  Report Type: 
  Country: None (occurrence: None)
  Receive Date: 20110620
  Receipt Date: 20110616
  Transmission Date: 20111010
  Serious: Yes (Other)
  Sender: FDA-Public Use
  Company Number: US-PFIZER INC-2011132935

PATIENT
  Sex: Male
  Weight: 126.08 kg

DRUGS (6)
  1. PHENOBARBITAL [Suspect]
     Indication: CONVULSION
     Dosage: UNK
     Dates: start: 19800101
  2. CRESTOR [Concomitant]
     Indication: HYPERTENSION
     Dosage: UNK
  3. TRAZODONE [Concomitant]
     Indication: SLEEP DISORDER
     Dosage: UNK
  4. DILANTIN [Suspect]
     Indication: CONVULSION
     Dosage: 100 MG, 4X/DAY
     Route: 048
     Dates: start: 19810101
  5. NIACIN [Concomitant]
     Dosage: UNK
  6. TRICOR [Concomitant]
     Indication: BLOOD CHOLESTEROL INCREASED
     Dosage: UNK

REACTIONS (1)
  - DRUG LEVEL DECREASED [None]
